FAERS Safety Report 7578595-9 (Version None)
Quarter: 2011Q2

REPORT INFORMATION
  Report Type: 
  Country: None (occurrence: None)
  Receive Date: 20110628
  Receipt Date: 20110623
  Transmission Date: 20111010
  Serious: Yes (Other)
  Sender: FDA-Public Use
  Company Number: US-GILEAD-2011-0036882

PATIENT
  Sex: Female

DRUGS (4)
  1. LETAIRIS [Suspect]
     Indication: PULMONARY EMBOLISM
  2. LETAIRIS [Suspect]
     Indication: PULMONARY HYPERTENSION
     Route: 048
     Dates: start: 20090119
  3. LETAIRIS [Suspect]
     Indication: FIBROMYALGIA
  4. REVATIO [Concomitant]

REACTIONS (2)
  - SYNCOPE [None]
  - HYPOTENSION [None]
